FAERS Safety Report 8937075 (Version 2)
Quarter: 2012Q4

REPORT INFORMATION
  Report Type: 
  Country: US (occurrence: US)
  Receive Date: 20121129
  Receipt Date: 20121220
  Transmission Date: 20130627
  Serious: Yes (Other)
  Sender: FDA-Public Use
  Company Number: US-AMGEN-USASP2012075275

PATIENT
  Age: 66 Year
  Sex: Female

DRUGS (2)
  1. XGEVA [Suspect]
     Indication: BREAST CANCER
     Dosage: UNK
  2. XGEVA [Suspect]
     Indication: BONE NEOPLASM MALIGNANT

REACTIONS (2)
  - Fracture [Unknown]
  - Injury [Unknown]
